FAERS Safety Report 16279817 (Version 1)
Quarter: 2019Q2

REPORT INFORMATION
  Report Type: Spontaneous
  Country: GB (occurrence: GB)
  Receive Date: 20190507
  Receipt Date: 20190507
  Transmission Date: 20190711
  Serious: Yes (Other)
  Sender: FDA-Public Use
  Company Number: GB-SA-2019SA115669

PATIENT
  Age: 37 Year
  Sex: Female

DRUGS (4)
  1. PENICILLINE [BENZYLPENICILLIN] [Concomitant]
  2. CLEXANE [Suspect]
     Active Substance: ENOXAPARIN SODIUM
  3. NEORECORMON [Concomitant]
     Active Substance: ERYTHROPOIETIN
  4. EXJADE [Concomitant]
     Active Substance: DEFERASIROX
     Dosage: UNK

REACTIONS (2)
  - Vascular device infection [Unknown]
  - Contusion [Unknown]
